FAERS Safety Report 4698583-X (Version None)
Quarter: 2005Q2

REPORT INFORMATION
  Report Type: 
  Country: None (occurrence: None)
  Receive Date: 20050622
  Receipt Date: 20050201
  Transmission Date: 20051028
  Serious: Yes (Other)
  Sender: FDA-Public Use
  Company Number: US-JNJFOC-20041206501

PATIENT
  Age: 70 Year
  Sex: Male

DRUGS (6)
  1. PEPCID AC [Suspect]
     Dosage: 20 MG, 1 IN 1 DAY
     Dates: start: 20041220, end: 20041221
  2. NORVASC [Concomitant]
  3. LISINOPRIL [Concomitant]
  4. FLU SHOT (INFLUENZA VACCINE) [Concomitant]
  5. ZOCOR [Concomitant]
  6. DYE (ALL OTHER THERAPEUTIC PRODUCTS) [Suspect]

REACTIONS (2)
  - PYREXIA [None]
  - SWELLING FACE [None]
